FAERS Safety Report 9452744 (Version 1)
Quarter: 2013Q3

REPORT INFORMATION
  Report Type: Report from Study
  Country: CA (occurrence: CA)
  Receive Date: 20130812
  Receipt Date: 20130812
  Transmission Date: 20140515
  Serious: Yes (Other)
  Sender: FDA-Public Use
  Company Number: PHHY2013CA073756

PATIENT
  Sex: Female

DRUGS (2)
  1. CLOZARIL [Suspect]
     Indication: SCHIZOPHRENIA
     Dosage: UNK UKN, UNK
     Dates: start: 20121207, end: 20130305
  2. CLOZARIL [Suspect]
     Dosage: UNK UKN, UNK
     Dates: start: 20130717

REACTIONS (4)
  - Haemorrhage [Unknown]
  - Blood pressure decreased [Unknown]
  - Thrombophlebitis [Unknown]
  - Thrombocytosis [Unknown]
